FAERS Safety Report 8786874 (Version 1)
Quarter: 2012Q4

REPORT INFORMATION
  Report Type: 
  Country: US (occurrence: US)
  Receive Date: 20120914
  Receipt Date: 20120914
  Transmission Date: 20130627
  Serious: No
  Sender: FDA-Public Use
  Company Number: US-VERTEX PHARMACEUTICAL INC.-AE-2012-011169

PATIENT
  Sex: Female
  Weight: 51 kg

DRUGS (4)
  1. INCIVEK [Suspect]
     Indication: HEPATITIS C
     Route: 048
     Dates: start: 20120628
  2. PEGASYS [Concomitant]
     Indication: HEPATITIS C
     Route: 058
     Dates: start: 20120628
  3. RIBAPAK [Concomitant]
     Indication: HEPATITIS C
     Dates: start: 20120628
  4. YAZ 28 [Concomitant]

REACTIONS (2)
  - Rash [Unknown]
  - Pruritus [Unknown]
